FAERS Safety Report 4454707-0 (Version None)
Quarter: 2004Q3

REPORT INFORMATION
  Report Type: 
  Country: None (occurrence: None)
  Receive Date: 20040920
  Receipt Date: 20040920
  Transmission Date: 20050211
  Serious: No
  Sender: FDA-Public Use
  Company Number: None

PATIENT
  Sex: Female
  Weight: 59.8748 kg

DRUGS (5)
  1. AMPHETAMINE SALTS 30 MG        BARR [Suspect]
     Indication: ATTENTION DEFICIT/HYPERACTIVITY DISORDER
     Dosage: 1 QAM ORAL; 1/2 QPM ORAL
     Route: 048
     Dates: start: 20040505, end: 20040525
  2. LAMICTAL [Concomitant]
  3. VALIUM [Concomitant]
  4. TRILEPTAL [Concomitant]
  5. LEVOXYL [Concomitant]

REACTIONS (2)
  - DRUG INEFFECTIVE [None]
  - PHARMACEUTICAL PRODUCT COMPLAINT [None]
